FAERS Safety Report 25772897 (Version 2)
Quarter: 2025Q3

REPORT INFORMATION
  Report Type: Spontaneous
  Country: EU (occurrence: EU)
  Receive Date: 20250908
  Receipt Date: 20250915
  Transmission Date: 20251021
  Serious: Yes (Other)
  Sender: AUROBINDO
  Company Number: EU-AUROBINDO-AUR-APL-2025-044697

PATIENT
  Age: 40 Year
  Sex: Male

DRUGS (6)
  1. AMIODARONE [Suspect]
     Active Substance: AMIODARONE
     Indication: Ventricular fibrillation
     Route: 065
  2. AMIODARONE [Suspect]
     Active Substance: AMIODARONE
     Indication: Electric shock
  3. SOTALOL [Suspect]
     Active Substance: SOTALOL
     Indication: Ventricular fibrillation
     Route: 065
  4. SOTALOL [Suspect]
     Active Substance: SOTALOL
     Indication: Electric shock
  5. MEXILETINE [Suspect]
     Active Substance: MEXILETINE
     Indication: Ventricular fibrillation
     Route: 065
  6. MEXILETINE [Suspect]
     Active Substance: MEXILETINE
     Indication: Electric shock

REACTIONS (1)
  - Drug ineffective [Unknown]
